FAERS Safety Report 18211737 (Version 1)
Quarter: 2020Q3

REPORT INFORMATION
  Report Type: Report from Study
  Country: CA (occurrence: CA)
  Receive Date: 20200831
  Receipt Date: 20200831
  Transmission Date: 20201103
  Serious: Yes (Hospitalization, Other)
  Sender: FDA-Public Use
  Company Number: CA-ACCORD-198013

PATIENT
  Age: 57 Year
  Sex: Male
  Weight: 120 kg

DRUGS (26)
  1. PREDNISONE. [Concomitant]
     Active Substance: PREDNISONE
  2. VALACICLOVIR [Concomitant]
     Active Substance: VALACYCLOVIR HYDROCHLORIDE
  3. ACLASTA [Concomitant]
     Active Substance: ZOLEDRONIC ACID
  4. BENADRYL [Concomitant]
     Active Substance: DIPHENHYDRAMINE HYDROCHLORIDE
     Indication: PREMEDICATION
     Route: 048
  5. CALCIUM GLUCONATE. [Concomitant]
     Active Substance: CALCIUM GLUCONATE
  6. CICLOSPORIN [Concomitant]
     Active Substance: CYCLOSPORINE
  7. TRAMADOL. [Concomitant]
     Active Substance: TRAMADOL
  8. ZOLEDRONIC ACID [Concomitant]
     Active Substance: ZOLEDRONIC ACID
  9. RITUXIMAB. [Suspect]
     Active Substance: RITUXIMAB
     Indication: STEM CELL TRANSPLANT
     Dosage: 1 EVERY 1 WEEKS
     Route: 042
  10. PARACETAMOL [Concomitant]
     Active Substance: ACETAMINOPHEN
     Route: 048
  11. AMLODIPINE [Concomitant]
     Active Substance: AMLODIPINE BESYLATE
     Dosage: EVERY 1 DAYS
     Route: 048
  12. DICLOFENAC [Concomitant]
     Active Substance: DICLOFENAC
     Dosage: 1 EVERY 1 DAYS
     Route: 048
  13. FLOVENT [Concomitant]
     Active Substance: FLUTICASONE PROPIONATE
  14. ERYTHROMYCIN. [Concomitant]
     Active Substance: ERYTHROMYCIN
  15. FOLIC ACID. [Concomitant]
     Active Substance: FOLIC ACID
     Dosage: 1 EVERY 1 DAYS
     Route: 048
  16. HYDROXYCHLOROQUINE [Concomitant]
     Active Substance: HYDROXYCHLOROQUINE
     Dosage: 1 EVERY 1 DAYS
     Route: 048
  17. SEPTRA DS [Concomitant]
     Active Substance: SULFAMETHOXAZOLE\TRIMETHOPRIM
  18. SULFASALAZINE. [Concomitant]
     Active Substance: SULFASALAZINE
     Route: 048
  19. METHOTREXATE. [Suspect]
     Active Substance: METHOTREXATE
     Indication: PSORIATIC ARTHROPATHY
     Dosage: 1 EVERY 1 WEEKS
     Route: 048
  20. METHYLPREDNISOLONE. [Concomitant]
     Active Substance: METHYLPREDNISOLONE
     Route: 042
  21. PANTOPRAZOLE [Concomitant]
     Active Substance: PANTOPRAZOLE
     Dosage: 1 EVERY 1 DAYS
     Route: 048
  22. VALTREX [Concomitant]
     Active Substance: VALACYCLOVIR HYDROCHLORIDE
     Dosage: 2 EVERY 1 DAYS
  23. RITUXIMAB. [Suspect]
     Active Substance: RITUXIMAB
     Indication: STEM CELL TRANSPLANT
     Dosage: 1 EVERY 1 WEEKS
     Route: 042
  24. FLUCONAZOLE. [Concomitant]
     Active Substance: FLUCONAZOLE
  25. SALBUTAMOL [Concomitant]
     Active Substance: ALBUTEROL
     Dosage: 2 EVERY 1 DAYS
  26. ZOPICLONE [Concomitant]
     Active Substance: ZOPICLONE

REACTIONS (25)
  - Blood pressure systolic abnormal [Not Recovered/Not Resolved]
  - Chorioretinopathy [Not Recovered/Not Resolved]
  - Blood pressure increased [Not Recovered/Not Resolved]
  - Fatigue [Not Recovered/Not Resolved]
  - Weight increased [Not Recovered/Not Resolved]
  - Arthralgia [Not Recovered/Not Resolved]
  - Alanine aminotransferase increased [Not Recovered/Not Resolved]
  - Blood pressure diastolic abnormal [Not Recovered/Not Resolved]
  - Cataract [Not Recovered/Not Resolved]
  - Drug hypersensitivity [Not Recovered/Not Resolved]
  - Blood pressure decreased [Not Recovered/Not Resolved]
  - Injection site extravasation [Not Recovered/Not Resolved]
  - Intentional product use issue [Unknown]
  - Pneumonia [Not Recovered/Not Resolved]
  - Oedema peripheral [Not Recovered/Not Resolved]
  - Blood pressure fluctuation [Not Recovered/Not Resolved]
  - Blood pressure systolic increased [Not Recovered/Not Resolved]
  - Dyspnoea exertional [Not Recovered/Not Resolved]
  - Oxygen saturation decreased [Not Recovered/Not Resolved]
  - Retinal detachment [Not Recovered/Not Resolved]
  - Conjunctival hyperaemia [Not Recovered/Not Resolved]
  - Hot flush [Not Recovered/Not Resolved]
  - Infusion related reaction [Not Recovered/Not Resolved]
  - Dyspnoea [Not Recovered/Not Resolved]
  - Weight decreased [Not Recovered/Not Resolved]
